FAERS Safety Report 17544558 (Version 1)
Quarter: 2020Q1

REPORT INFORMATION
  Report Type: Spontaneous
  Country: US (occurrence: US)
  Receive Date: 20200316
  Receipt Date: 20200316
  Transmission Date: 20200409
  Serious: No
  Sender: FDA-Public Use
  Company Number: US-TEVA-2020-US-1205370

PATIENT
  Sex: Female

DRUGS (1)
  1. CLOZAPINE. [Suspect]
     Active Substance: CLOZAPINE
     Indication: ANXIETY
     Dosage: .75 MILLICURIES DAILY; YELLOW PILL
     Route: 065

REACTIONS (4)
  - Somnolence [Unknown]
  - Slow speech [Unknown]
  - Feeling drunk [Unknown]
  - Wrong technique in product usage process [Unknown]
